FAERS Safety Report 5942149-8 (Version None)
Quarter: 2008Q4

REPORT INFORMATION
  Report Type: 
  Country: None (occurrence: None)
  Receive Date: 20081105
  Receipt Date: 20081029
  Transmission Date: 20090506
  Serious: Yes (Life-Threatening, Hospitalization)
  Sender: FDA-Public Use
  Company Number: SE-AVENTIS-200820249GDDC

PATIENT
  Age: 59 Year
  Sex: Female

DRUGS (4)
  1. DOCETAXEL [Suspect]
     Dosage: DOSE: UNK
     Route: 042
     Dates: start: 20081002, end: 20081002
  2. TRASTUZUMAB [Suspect]
     Route: 042
     Dates: start: 20081002, end: 20081002
  3. DEXAMETHASONE TAB [Concomitant]
     Dates: start: 20081001, end: 20081004
  4. ATENOLOL [Concomitant]

REACTIONS (2)
  - CEREBROVASCULAR ACCIDENT [None]
  - PYREXIA [None]
